FAERS Safety Report 10687438 (Version 3)
Quarter: 2015Q1

REPORT INFORMATION
  Report Type: Report from Study
  Country: US (occurrence: US)
  Receive Date: 20150102
  Receipt Date: 20150127
  Transmission Date: 20150720
  Serious: No
  Sender: FDA-Public Use
  Company Number: US-JNJFOC-20141020439

PATIENT
  Sex: Female

DRUGS (3)
  1. INVOKANA [Suspect]
     Active Substance: CANAGLIFLOZIN
     Indication: PRODUCT USED FOR UNKNOWN INDICATION
     Route: 065
  2. INVOKANA [Suspect]
     Active Substance: CANAGLIFLOZIN
     Indication: PRODUCT USED FOR UNKNOWN INDICATION
     Route: 065
  3. INVOKANA [Suspect]
     Active Substance: CANAGLIFLOZIN
     Indication: PRODUCT USED FOR UNKNOWN INDICATION
     Route: 065

REACTIONS (5)
  - Gastric disorder [Recovered/Resolved]
  - Blood pressure decreased [Unknown]
  - Fungal infection [Unknown]
  - Medication error [Unknown]
  - Weight decreased [Unknown]
